FAERS Safety Report 15612421 (Version 2)
Quarter: 2019Q1

REPORT INFORMATION
  Report Type: Spontaneous
  Country: US (occurrence: US)
  Receive Date: 20181113
  Receipt Date: 20190110
  Transmission Date: 20190417
  Serious: Yes (Hospitalization)
  Sender: FDA-Public Use
  Company Number: US-ASTRAZENECA-2018SF46728

PATIENT
  Age: 23894 Day
  Sex: Female
  Weight: 62.6 kg

DRUGS (1)
  1. SYMBICORT [Suspect]
     Active Substance: BUDESONIDE\FORMOTEROL FUMARATE DIHYDRATE
     Indication: CHRONIC OBSTRUCTIVE PULMONARY DISEASE
     Dosage: 160 MCG/4.5 MCG 2 INHALATIONS TWICE A DAY
     Route: 055
     Dates: start: 2011

REACTIONS (7)
  - Gallbladder rupture [Unknown]
  - Respiratory arrest [Unknown]
  - Dyspnoea [Unknown]
  - Intentional device misuse [Unknown]
  - Oxygen saturation decreased [Unknown]
  - Dyspnoea exertional [Unknown]
  - Drug ineffective [Unknown]

NARRATIVE: CASE EVENT DATE: 20181105
